FAERS Safety Report 4589371-3 (Version None)
Quarter: 2005Q1

REPORT INFORMATION
  Report Type: 
  Country: None (occurrence: None)
  Receive Date: 20050223
  Receipt Date: 20050211
  Transmission Date: 20050727
  Serious: Yes (Hospitalization)
  Sender: FDA-Public Use
  Company Number: FR-BRISTOL-MYERS SQUIBB COMPANY-12866778

PATIENT
  Sex: Female

DRUGS (9)
  1. PRAVASTATIN [Suspect]
     Route: 048
  2. FOZITEC [Suspect]
     Route: 048
  3. DI-ANTALVIC [Suspect]
     Route: 048
     Dates: start: 20050113
  4. INSULATARD [Suspect]
     Indication: DIABETES MELLITUS
     Route: 042
  5. KARDEGIC [Suspect]
     Route: 048
  6. KREDEX [Suspect]
     Route: 048
     Dates: start: 20041101
  7. LASILIX [Suspect]
     Route: 048
  8. PLAVIX [Suspect]
     Route: 048
  9. NOVONORM [Suspect]
     Route: 048

REACTIONS (4)
  - ALANINE AMINOTRANSFERASE INCREASED [None]
  - ASPARTATE AMINOTRANSFERASE INCREASED [None]
  - GAMMA-GLUTAMYLTRANSFERASE INCREASED [None]
  - HEPATOMEGALY [None]
